FAERS Safety Report 21823772 (Version 1)
Quarter: 2023Q1

REPORT INFORMATION
  Report Type: Report from Study
  Country: IT (occurrence: IT)
  Receive Date: 20230105
  Receipt Date: 20230105
  Transmission Date: 20230418
  Serious: Yes (Hospitalization)
  Sender: FDA-Public Use
  Company Number: None

PATIENT

DRUGS (7)
  1. PEGASPARGASE [Suspect]
     Active Substance: PEGASPARGASE
     Indication: Acute lymphocytic leukaemia
     Dosage: 3597.5 IU/ DAY ON 03/10/2022-17/10/22
     Route: 042
     Dates: start: 20221003, end: 20221017
  2. CYTARABINE [Suspect]
     Active Substance: CYTARABINE
     Indication: Acute lymphocytic leukaemia
     Dosage: 104 MG/DAY FROM 09/11/22 TO 12/11/22, 99,50 MG/DAY FROM 23 TO 26/11/22, 99,50 MG/DAY FROM 29/11 TO 0
     Route: 065
     Dates: start: 20221109, end: 20221112
  3. CYTARABINE [Suspect]
     Active Substance: CYTARABINE
     Dosage: 104 MG/DAY FROM 09/11/22 TO 12/11/22, 99,50 MG/DAY FROM 23 TO 26/11/22, 99,50 MG/DAY FROM 29/11 TO 0
     Route: 065
     Dates: start: 20221123, end: 20221126
  4. CYTARABINE [Suspect]
     Active Substance: CYTARABINE
     Dosage: 104 MG/DAY FROM 09/11/22 TO 12/11/22, 99,50 MG/DAY FROM 23 TO 26/11/22, 99,50 MG/DAY FROM 29/11 TO 0
     Route: 065
     Dates: start: 20221129, end: 20221202
  5. CYTARABINE [Suspect]
     Active Substance: CYTARABINE
     Dosage: 104 MG/DAY FROM 09/11/22 TO 12/11/22, 99,50 MG/DAY FROM 23 TO 26/11/22, 99,50 MG/DAY FROM 29/11 TO 0
     Route: 065
     Dates: start: 20221207, end: 20221210
  6. PURINETHOL [Suspect]
     Active Substance: MERCAPTOPURINE
     Indication: Acute lymphocytic leukaemia
     Dosage: 85 MG/DAY ON 7/11/22, 87.5 MG/DAY FROM 8/11/22 TO 12/12/22
     Route: 065
     Dates: start: 20221107, end: 20221107
  7. PURINETHOL [Suspect]
     Active Substance: MERCAPTOPURINE
     Dosage: 85 MG/DAY ON 7/11/22, 87.5 MG/DAY FROM 8/11/22 TO 12/12/22
     Route: 065
     Dates: start: 20221108, end: 20221212

REACTIONS (4)
  - Ocular icterus [Recovering/Resolving]
  - Hyperbilirubinaemia [Recovering/Resolving]
  - Hypertransaminasaemia [Recovering/Resolving]
  - Jaundice hepatocellular [Recovering/Resolving]

NARRATIVE: CASE EVENT DATE: 20221018
